FAERS Safety Report 5209559-8 (Version None)
Quarter: 2007Q1

REPORT INFORMATION
  Report Type: 
  Country: None (occurrence: None)
  Receive Date: 20070116
  Receipt Date: 20070105
  Transmission Date: 20070707
  Serious: Yes (Other)
  Sender: FDA-Public Use
  Company Number: US-PFIZER INC-2007002240

PATIENT
  Sex: Female
  Weight: 108.9 kg

DRUGS (3)
  1. DEPO-SUBQ PROVERA 104 EP [Suspect]
     Indication: ENDOMETRIOSIS
     Route: 058
     Dates: start: 20050101, end: 20050101
  2. ELAVIL [Concomitant]
     Indication: FIBROMYALGIA
  3. NEURONTIN [Concomitant]
     Indication: FIBROMYALGIA

REACTIONS (2)
  - INCORRECT DOSE ADMINISTERED [None]
  - PELVIC PAIN [None]
